FAERS Safety Report 17268731 (Version 1)
Quarter: 2020Q1

REPORT INFORMATION
  Report Type: Spontaneous
  Country: US (occurrence: US)
  Receive Date: 20200114
  Receipt Date: 20200114
  Transmission Date: 20200409
  Serious: Yes (Hospitalization)
  Sender: FDA-Public Use
  Company Number: US-ASTRAZENECA-2019SF87019

PATIENT
  Age: 294 Day
  Sex: Male
  Weight: 7.3 kg

DRUGS (2)
  1. SYNAGIS [Suspect]
     Active Substance: PALIVIZUMAB
     Indication: PREMATURE BABY
     Dosage: 108.3 MONTHLY
     Route: 030
     Dates: start: 20191119
  2. SYNAGIS [Suspect]
     Active Substance: PALIVIZUMAB
     Indication: SICKLE CELL DISEASE
     Dosage: 108.3 MONTHLY
     Route: 030
     Dates: start: 20191119

REACTIONS (3)
  - Viral upper respiratory tract infection [Unknown]
  - Pneumonia [Unknown]
  - Wheezing [Unknown]

NARRATIVE: CASE EVENT DATE: 20191121
